FAERS Safety Report 12448554 (Version 2)
Quarter: 2016Q3

REPORT INFORMATION
  Report Type: Spontaneous
  Country: US (occurrence: US)
  Receive Date: 20160608
  Receipt Date: 20160722
  Transmission Date: 20161109
  Serious: Yes (Hospitalization)
  Sender: FDA-Public Use
  Company Number: US-JNJFOC-20160600460

PATIENT
  Age: 19 Year
  Sex: Male
  Weight: 54.43 kg

DRUGS (1)
  1. HALDOL [Suspect]
     Active Substance: HALOPERIDOL
     Indication: PRODUCT USED FOR UNKNOWN INDICATION
     Route: 030
     Dates: end: 201605

REACTIONS (8)
  - Hypersensitivity [Unknown]
  - Emotional disorder [Unknown]
  - Panic attack [Unknown]
  - Tremor [Unknown]
  - Muscle twitching [Unknown]
  - Abnormal behaviour [Unknown]
  - Gait disturbance [Unknown]
  - Hypokinesia [Unknown]

NARRATIVE: CASE EVENT DATE: 201605
